FAERS Safety Report 25968229 (Version 1)
Quarter: 2025Q4

REPORT INFORMATION
  Report Type: Spontaneous
  Country: EU (occurrence: EU)
  Receive Date: 20251028
  Receipt Date: 20251028
  Transmission Date: 20260117
  Serious: Yes (Hospitalization, Other)
  Sender: AUROBINDO
  Company Number: EU-AFSSAPS-NC2025001580

PATIENT
  Age: 81 Year
  Sex: Female
  Weight: 55.2 kg

DRUGS (9)
  1. FUROSEMIDE [Suspect]
     Active Substance: FUROSEMIDE
     Indication: Cardiac failure
     Dosage: 40 MILLIGRAM, ONCE A DAY
     Route: 048
     Dates: start: 20250814, end: 20250821
  2. FUROSEMIDE [Suspect]
     Active Substance: FUROSEMIDE
     Dosage: 140 MILLIGRAM, ONCE A DAY
     Route: 048
     Dates: start: 20250822, end: 20250822
  3. FUROSEMIDE [Suspect]
     Active Substance: FUROSEMIDE
     Dosage: 100 MILLIGRAM, ONCE A DAY
     Route: 048
     Dates: start: 20250823, end: 20250828
  4. FUROSEMIDE [Suspect]
     Active Substance: FUROSEMIDE
     Dosage: 40 MILLIGRAM, ONCE A DAY
     Route: 048
     Dates: start: 20250829, end: 20250831
  5. CEFEPIME [Suspect]
     Active Substance: CEFEPIME HYDROCHLORIDE
     Indication: Arthritis infective
     Dosage: 4.5 GRAM, ONCE A DAY
     Route: 042
     Dates: start: 20250708, end: 20250715
  6. CEFEPIME [Suspect]
     Active Substance: CEFEPIME HYDROCHLORIDE
     Dosage: 3 GRAM, ONCE A DAY
     Route: 042
     Dates: start: 20250818, end: 20250826
  7. CEFEPIME [Suspect]
     Active Substance: CEFEPIME HYDROCHLORIDE
     Dosage: 2 GRAM, ONCE A DAY
     Route: 042
     Dates: start: 20250827, end: 20250831
  8. FUROSEMIDE [Suspect]
     Active Substance: FUROSEMIDE
     Indication: Cardiac failure
     Dosage: 60 MILLIGRAM, ONCE A DAY
     Route: 042
     Dates: start: 20250821, end: 20250821
  9. FUROSEMIDE [Suspect]
     Active Substance: FUROSEMIDE
     Dosage: 20 MILLIGRAM, ONCE A DAY
     Route: 042
     Dates: start: 20250825, end: 20250825

REACTIONS (1)
  - Acute kidney injury [Recovering/Resolving]

NARRATIVE: CASE EVENT DATE: 20250822
